FAERS Safety Report 6224665-7 (Version None)
Quarter: 2009Q2

REPORT INFORMATION
  Report Type: 
  Country: None (occurrence: None)
  Receive Date: 20090612
  Receipt Date: 20090416
  Transmission Date: 20091009
  Serious: No
  Sender: FDA-Public Use
  Company Number: US-ABBOTT-09P-163-0564762-00

PATIENT
  Sex: Female
  Weight: 70.824 kg

DRUGS (14)
  1. HUMIRA [Suspect]
     Indication: RHEUMATOID ARTHRITIS
     Route: 058
     Dates: start: 20030101, end: 20090223
  2. HUMIRA [Suspect]
     Route: 058
     Dates: start: 20090306
  3. METHOTREXATE [Concomitant]
     Indication: RHEUMATOID ARTHRITIS
     Dates: start: 20090303
  4. METHOTREXATE [Concomitant]
     Dosage: UNKNOWN DOSE
     Dates: end: 20090216
  5. PREDNISONE [Concomitant]
     Indication: DRUG USE FOR UNKNOWN INDICATION
     Route: 048
  6. SYNTHROID [Concomitant]
     Indication: DRUG USE FOR UNKNOWN INDICATION
     Route: 048
  7. HYDROCHLOROTHIAZIDE [Concomitant]
     Indication: DRUG USE FOR UNKNOWN INDICATION
     Route: 048
  8. PROTONIX [Concomitant]
     Indication: GASTROINTESTINAL ULCER
     Route: 048
  9. ULTRAM [Concomitant]
     Indication: PAIN
     Route: 048
  10. FOLIC ACID [Concomitant]
     Indication: DRUG USE FOR UNKNOWN INDICATION
     Route: 048
  11. CELEXA [Concomitant]
     Indication: DRUG USE FOR UNKNOWN INDICATION
     Route: 048
  12. CALCIUM +VIT D [Concomitant]
     Indication: DRUG USE FOR UNKNOWN INDICATION
     Dosage: TAKES 2 PILLS DAILY
     Route: 048
  13. CENTRUM SILVER [Concomitant]
     Indication: DRUG USE FOR UNKNOWN INDICATION
  14. TYLENOL (CAPLET) [Concomitant]
     Indication: PAIN
     Dosage: PRN FOR PAIN, MAX HAS 6 TABS PER DAY.

REACTIONS (8)
  - COAGULOPATHY [None]
  - CONTUSION [None]
  - DYSPNOEA [None]
  - FLUSHING [None]
  - INTERNATIONAL NORMALISED RATIO DECREASED [None]
  - RASH PAPULAR [None]
  - SWELLING FACE [None]
  - URINARY TRACT INFECTION [None]
